FAERS Safety Report 8334954-8 (Version None)
Quarter: 2012Q2

REPORT INFORMATION
  Report Type: 
  Country: None (occurrence: None)
  Receive Date: 20120503
  Receipt Date: 20120424
  Transmission Date: 20120825
  Serious: Yes (Death)
  Sender: FDA-Public Use
  Company Number: GB-ROCHE-1062486

PATIENT
  Sex: Male
  Weight: 67 kg

DRUGS (2)
  1. ACTEMRA [Suspect]
     Indication: PRODUCT USED FOR UNKNOWN INDICATION
     Dates: start: 20110115
  2. METHOTREXATE [Concomitant]

REACTIONS (3)
  - DIVERTICULITIS [None]
  - PNEUMONIA [None]
  - PULMONARY FIBROSIS [None]
